FAERS Safety Report 14224135 (Version 1)
Quarter: 2017Q4

REPORT INFORMATION
  Report Type: Spontaneous
  Country: US (occurrence: None)
  Receive Date: 20171125
  Receipt Date: 20171125
  Transmission Date: 20180321
  Serious: Yes (Life-Threatening, Hospitalization)
  Sender: FDA-Public Use
  Company Number: None

PATIENT
  Age: 36 Year
  Sex: Female
  Weight: 87.7 kg

DRUGS (1)
  1. WARFARIN [Suspect]
     Active Substance: WARFARIN
     Indication: MITRAL VALVE REPLACEMENT
     Route: 048

REACTIONS (7)
  - Asthenia [None]
  - Cardiac arrest [None]
  - Cerebrovascular accident [None]
  - Aphasia [None]
  - International normalised ratio decreased [None]
  - Pulmonary oedema [None]
  - Mitral valve incompetence [None]

NARRATIVE: CASE EVENT DATE: 20171121
